FAERS Safety Report 6669447-7 (Version None)
Quarter: 2010Q2

REPORT INFORMATION
  Report Type: 
  Country: None (occurrence: None)
  Receive Date: 20100406
  Receipt Date: 20100325
  Transmission Date: 20101027
  Serious: Yes (Hospitalization, Other)
  Sender: FDA-Public Use
  Company Number: PHHY2010DE20179

PATIENT
  Sex: Female

DRUGS (4)
  1. RASILEZ [Suspect]
     Dosage: 300 MG, UNK
     Route: 048
     Dates: start: 20070101
  2. RASILEZ [Suspect]
     Dosage: 150 MG/DAY
     Route: 048
     Dates: end: 20090101
  3. RASILEZ [Suspect]
     Dosage: 300MG/D
     Route: 048
     Dates: start: 20090101
  4. XELODA [Concomitant]
     Dosage: UNK

REACTIONS (3)
  - BLOOD PRESSURE INCREASED [None]
  - CONVULSION [None]
  - NEOPLASM MALIGNANT [None]
